FAERS Safety Report 4859735-9 (Version None)
Quarter: 2005Q4

REPORT INFORMATION
  Report Type: 
  Country: None (occurrence: None)
  Receive Date: 20051219
  Receipt Date: 20051205
  Transmission Date: 20060501
  Serious: Yes (Other)
  Sender: FDA-Public Use
  Company Number: NSADSS2003006160

PATIENT
  Sex: Female
  Weight: 46.6 kg

DRUGS (3)
  1. REMICADE [Suspect]
     Route: 041
  2. REMICADE [Suspect]
     Indication: UVEITIS
     Route: 041
  3. METHOTREXATE [Concomitant]

REACTIONS (1)
  - VITREOUS HAEMORRHAGE [None]
